FAERS Safety Report 19816685 (Version 1)
Quarter: 2021Q3

REPORT INFORMATION
  Report Type: Spontaneous
  Country: US (occurrence: US)
  Receive Date: 20210910
  Receipt Date: 20210910
  Transmission Date: 20211014
  Serious: No
  Sender: FDA-Public Use
  Company Number: US-SA-2021SA297815

PATIENT
  Age: 56 Year
  Sex: Female

DRUGS (13)
  1. DUPIXENT [Suspect]
     Active Substance: DUPILUMAB
     Indication: ILLNESS
     Dosage: 300 MG, QOW
     Route: 058
     Dates: start: 202108
  2. APPLE CIDER VINEGAR [Concomitant]
     Active Substance: APPLE CIDER VINEGAR
     Dosage: 500MG
  3. VITAMIN B12 [Concomitant]
     Active Substance: CYANOCOBALAMIN
     Dosage: 2500 MCG TABLET
  4. VITAMIN E NOS [Concomitant]
     Active Substance: .ALPHA.-TOCOPHEROL
  5. METOPROLOL SUCCINATE. [Concomitant]
     Active Substance: METOPROLOL SUCCINATE
  6. ALLEGRA D 12HR [Concomitant]
     Dosage: 66 MG
  7. VITAMIN C [Concomitant]
     Active Substance: ASCORBIC ACID
  8. TRIAMCINOLONE ACETONIDE. [Concomitant]
     Active Substance: TRIAMCINOLONE ACETONIDE
     Dosage: 500 MG
  9. NIACIN. [Concomitant]
     Active Substance: NIACIN
     Dosage: 100 MG
  10. ZINC. [Concomitant]
     Active Substance: ZINC
     Dosage: 1566 MG
  11. RESTASIS [Concomitant]
     Active Substance: CYCLOSPORINE
     Dosage: 500 MG
  12. CINNAMON [CINNAMOMUM VERUM] [Concomitant]
  13. VITAMIN D3 [Concomitant]
     Active Substance: CHOLECALCIFEROL
     Dosage: 10 MCG CAPSULE

REACTIONS (5)
  - Eye allergy [Unknown]
  - Lacrimation increased [Unknown]
  - Erythema of eyelid [Unknown]
  - Therapeutic product effect incomplete [Unknown]
  - Eye irritation [Unknown]

NARRATIVE: CASE EVENT DATE: 20210829
